FAERS Safety Report 6322253-5 (Version None)
Quarter: 2009Q3

REPORT INFORMATION
  Report Type: 
  Country: None (occurrence: None)
  Receive Date: 20090824
  Receipt Date: 20090129
  Transmission Date: 20100115
  Serious: No
  Sender: FDA-Public Use
  Company Number: US-ABBOTT-09P-163-0500847-00

PATIENT
  Sex: Male
  Weight: 77.18 kg

DRUGS (7)
  1. NIASPAN [Suspect]
     Indication: BLOOD TRIGLYCERIDES INCREASED
     Route: 048
     Dates: start: 20070101, end: 20081201
  2. NIASPAN [Suspect]
     Indication: BLOOD CHOLESTEROL INCREASED
     Route: 048
     Dates: start: 20090101, end: 20090128
  3. RAMIPRIL [Concomitant]
     Indication: HYPERTENSION
     Route: 048
  4. EXFORGE [Concomitant]
     Indication: HYPERTENSION
     Dosage: 5/160MG
     Route: 048
  5. LOVAZA [Concomitant]
     Indication: BLOOD CHOLESTEROL
     Route: 048
  6. ASPIRIN [Concomitant]
     Indication: FLUSHING
     Route: 048
  7. ASPIRIN [Concomitant]
     Indication: PROPHYLAXIS

REACTIONS (2)
  - FLUSHING [None]
  - HEADACHE [None]
